FAERS Safety Report 5360057-0 (Version None)
Quarter: 2007Q2

REPORT INFORMATION
  Report Type: 
  Country: None (occurrence: None)
  Receive Date: 20070618
  Receipt Date: 20061121
  Transmission Date: 20071010
  Serious: No
  Sender: FDA-Public Use
  Company Number: US-ASTRAZENECA-2006UW25838

PATIENT
  Age: 75 Year
  Sex: Female
  Weight: 77.1 kg

DRUGS (5)
  1. FASLODEX [Suspect]
     Indication: BREAST CANCER METASTATIC
     Dosage: 5.0 ML PREFILLED SYRINGE
  2. VYTORIN [Concomitant]
  3. AMLODIPINE [Concomitant]
  4. TOPROL-XL [Concomitant]
  5. ZOMETA [Concomitant]

REACTIONS (3)
  - CONTUSION [None]
  - PRURITUS [None]
  - RASH GENERALISED [None]
